FAERS Safety Report 8797386 (Version 2)
Quarter: 2013Q1

REPORT INFORMATION
  Report Type: Spontaneous
  Country: JP (occurrence: JP)
  Receive Date: 20120920
  Receipt Date: 20130328
  Transmission Date: 20140127
  Serious: Yes (Other)
  Sender: FDA-Public Use
  Company Number: JP-EISAI INC-E7389-03008-SPO-JP

PATIENT
  Age: 76 Year
  Sex: Female

DRUGS (5)
  1. HALAVEN [Suspect]
     Indication: BREAST CANCER RECURRENT
     Route: 041
     Dates: start: 20120830, end: 20120913
  2. HALAVEN [Suspect]
     Route: 041
     Dates: start: 20121025, end: 20121213
  3. KLARICID [Suspect]
     Indication: PRODUCT USED FOR UNKNOWN INDICATION
     Route: 048
     Dates: start: 2012
  4. CARDENALIN [Concomitant]
     Indication: HYPERTENSION
     Route: 048
  5. LIPOVAS [Concomitant]
     Indication: HYPERLIPIDAEMIA
     Route: 048

REACTIONS (3)
  - Delirium [Recovered/Resolved]
  - Urinary incontinence [Recovered/Resolved]
  - Liver function test abnormal [Recovered/Resolved]
